FAERS Safety Report 16154975 (Version 2)
Quarter: 2019Q2

REPORT INFORMATION
  Report Type: Spontaneous
  Country: DE (occurrence: DE)
  Receive Date: 20190403
  Receipt Date: 20190408
  Transmission Date: 20190711
  Serious: Yes (Hospitalization)
  Sender: FDA-Public Use
  Company Number: DE-ANIPHARMA-2019-DE-000041

PATIENT
  Age: 78 Year
  Sex: Female
  Weight: 59 kg

DRUGS (4)
  1. TORASEMIDE [Suspect]
     Active Substance: TORSEMIDE
     Dosage: 5MG DAILY
     Route: 048
     Dates: start: 2001, end: 20030119
  2. DILATREND [Suspect]
     Active Substance: CARVEDILOL
     Dosage: 25 MG DAILY / 12.5 MG DAILY
     Route: 048
     Dates: start: 200212, end: 20030119
  3. ACETYLSALICYLIC ACID [Concomitant]
     Active Substance: ASPIRIN
     Dosage: 100 MG DAILY
     Route: 065
     Dates: start: 1997
  4. CANDESARTAN CILEXETIL AND HYDROCHLOROTHIAZIDE [Suspect]
     Active Substance: CANDESARTAN CILEXETIL\HYDROCHLOROTHIAZIDE
     Indication: HYPERTENSION
     Dosage: UNK EVERY DAY
     Route: 048
     Dates: start: 200212

REACTIONS (4)
  - Dizziness [Unknown]
  - Headache [Unknown]
  - Hypotension [Recovered/Resolved]
  - Fatigue [Unknown]

NARRATIVE: CASE EVENT DATE: 200301
